FAERS Safety Report 6737545-5 (Version None)
Quarter: 2010Q2

REPORT INFORMATION
  Report Type: 
  Country: None (occurrence: None)
  Receive Date: 20100521
  Receipt Date: 20100521
  Transmission Date: 20101027
  Serious: Yes (Other)
  Sender: FDA-Public Use
  Company Number: None

PATIENT
  Age: 45 Year
  Sex: Female
  Weight: 72.5 kg

DRUGS (1)
  1. CELEXA [Suspect]
     Indication: ANXIETY

REACTIONS (6)
  - ASTHENIA [None]
  - DIZZINESS [None]
  - HEADACHE [None]
  - HYPOAESTHESIA [None]
  - LOCAL SWELLING [None]
  - THROAT TIGHTNESS [None]
